FAERS Safety Report 4945453-5 (Version None)
Quarter: 2006Q1

REPORT INFORMATION
  Report Type: 
  Country: None (occurrence: None)
  Receive Date: 20060316
  Receipt Date: 20051209
  Transmission Date: 20060701
  Serious: Yes (Hospitalization)
  Sender: FDA-Public Use
  Company Number: JP-JPN-A20053023

PATIENT
  Age: 63 Year
  Sex: Female
  Weight: 35 kg

DRUGS (7)
  1. ZOVIRAX [Suspect]
     Indication: HERPES ZOSTER
     Route: 031
     Dates: start: 20051202, end: 20051207
  2. ARASENA-A [Suspect]
     Indication: HERPES ZOSTER
     Route: 061
     Dates: start: 20051202, end: 20051207
  3. PANSPORIN T [Concomitant]
     Indication: SKIN INFECTION
     Dosage: 600MG PER DAY
     Route: 048
     Dates: start: 20051202, end: 20051205
  4. ALFAROL [Concomitant]
     Dosage: .25MG PER DAY
     Route: 048
  5. GASTER D [Concomitant]
     Dosage: 20MG PER DAY
     Route: 048
  6. PREDNISOLONE [Concomitant]
     Indication: RHEUMATOID ARTHRITIS
     Dosage: 5MG PER DAY
     Route: 048
  7. ISOSORBIDE MONONITRATE [Concomitant]
     Dosage: 80MG PER DAY
     Route: 048

REACTIONS (6)
  - ABNORMAL BEHAVIOUR [None]
  - DYSARTHRIA [None]
  - ENCEPHALOPATHY [None]
  - EOSINOPHIL COUNT INCREASED [None]
  - HALLUCINATION [None]
  - SOMNOLENCE [None]
